FAERS Safety Report 19093405 (Version 1)
Quarter: 2021Q2

REPORT INFORMATION
  Report Type: Report from Study
  Country: US (occurrence: US)
  Receive Date: 20210405
  Receipt Date: 20210405
  Transmission Date: 20210717
  Serious: Yes (Hospitalization, Other)
  Sender: FDA-Public Use
  Company Number: US-MALLINCKRODT PHARMACEUTICALS-T202005130

PATIENT
  Age: 70 Year
  Sex: Female
  Weight: 68 kg

DRUGS (2)
  1. REPOSITORY CORTICOTROPIN INJECTION [Suspect]
     Active Substance: CORTICOTROPIN
     Indication: DERMATOMYOSITIS
     Dosage: 80 UNITS, TWICE A WEEK
     Route: 058
     Dates: start: 20190926
  2. REPOSITORY CORTICOTROPIN INJECTION [Suspect]
     Active Substance: CORTICOTROPIN
     Dosage: 80 UNITS, 1 MILLILITER, TWICE A WEEK, AS DIRECTED
     Route: 058
     Dates: start: 202010

REACTIONS (12)
  - Blood pressure abnormal [Unknown]
  - Nephrolithiasis [Unknown]
  - Arthritis [Unknown]
  - Product dose omission issue [Unknown]
  - Leukaemia [Not Recovered/Not Resolved]
  - Dermatomyositis [Recovered/Resolved]
  - Photosensitivity reaction [Recovered/Resolved]
  - Skin laxity [Unknown]
  - Nephropathy [Unknown]
  - Condition aggravated [Unknown]
  - White blood cell count increased [Not Recovered/Not Resolved]
  - Kidney infection [Unknown]

NARRATIVE: CASE EVENT DATE: 2020
